FAERS Safety Report 23161799 (Version 3)
Quarter: 2024Q3

REPORT INFORMATION
  Report Type: Spontaneous
  Country: PK (occurrence: PK)
  Receive Date: 20231108
  Receipt Date: 20240815
  Transmission Date: 20241017
  Serious: Yes (Other)
  Sender: AMGEN
  Company Number: PK-PFIZER INC-202101240203

PATIENT
  Age: 30 Year
  Sex: Male
  Weight: 111 kg

DRUGS (10)
  1. ENBREL [Suspect]
     Active Substance: BENZYL ALCOHOL\ETANERCEPT
     Indication: Ankylosing spondylitis
     Dosage: 50 MG, WEEKLY
     Route: 058
  2. ENBREL [Suspect]
     Active Substance: BENZYL ALCOHOL\ETANERCEPT
     Dosage: 50 MG, AFTER 10 DAYS
     Route: 058
     Dates: start: 20210713
  3. ENBREL [Suspect]
     Active Substance: BENZYL ALCOHOL\ETANERCEPT
     Dosage: 50 MG, AFTER 10 DAYS
     Route: 058
     Dates: start: 20210923
  4. ENBREL [Suspect]
     Active Substance: BENZYL ALCOHOL\ETANERCEPT
     Dosage: 50 MG, EVERY 15 DAYS
     Route: 058
     Dates: start: 20221130
  5. ENBREL [Suspect]
     Active Substance: BENZYL ALCOHOL\ETANERCEPT
     Dosage: 50 MG, WEEKLY
     Route: 058
  6. ENBREL [Suspect]
     Active Substance: BENZYL ALCOHOL\ETANERCEPT
     Dosage: 50 MG, EVERY 3 WEEKS
     Route: 058
  7. Sunny d [Concomitant]
     Dosage: 1 DF, MONTHLY
     Route: 065
  8. EVION [Concomitant]
     Active Substance: .ALPHA.-TOCOPHEROL ACETATE
     Dosage: 1 DF, 1X/DAY
     Route: 065
  9. FOLIC ACID [Concomitant]
     Active Substance: FOLIC ACID
     Dosage: 5 MG
     Route: 065
  10. NUBEROL [Concomitant]
     Dosage: 1 DF
     Route: 065

REACTIONS (16)
  - Renal failure [Unknown]
  - Gastritis [Unknown]
  - Haemoglobin abnormal [Unknown]
  - Back pain [Unknown]
  - Muscle twitching [Unknown]
  - Alopecia [Unknown]
  - Joint range of motion decreased [Unknown]
  - White blood cells urine positive [Unknown]
  - Fatigue [Unknown]
  - Dry eye [Unknown]
  - Dry mouth [Unknown]
  - Pain [Unknown]
  - Musculoskeletal stiffness [Unknown]
  - C-reactive protein increased [Unknown]
  - Hypertransaminasaemia [Unknown]
  - Off label use [Unknown]

NARRATIVE: CASE EVENT DATE: 20210713
